FAERS Safety Report 6033963-1 (Version None)
Quarter: 2009Q1

REPORT INFORMATION
  Report Type: 
  Country: None (occurrence: None)
  Receive Date: 20090112
  Receipt Date: 20090107
  Transmission Date: 20090719
  Serious: Yes (Death)
  Sender: FDA-Public Use
  Company Number: PHEH2008US09461

PATIENT
  Sex: Female
  Weight: 66.667 kg

DRUGS (8)
  1. RECLAST [Suspect]
     Indication: OSTEOPOROSIS
     Dosage: 5 MG, ONCE/SINGLE
     Route: 042
     Dates: start: 20081015, end: 20081015
  2. RECLAST [Suspect]
     Indication: SPINAL FRACTURE
  3. CALCIUM CARBONATE [Concomitant]
  4. MOTRIN [Concomitant]
  5. PLENDIL [Concomitant]
  6. ASPIRIN [Concomitant]
  7. NEXIUM [Concomitant]
  8. FLEXERIL [Concomitant]

REACTIONS (1)
  - ELECTROMECHANICAL DISSOCIATION [None]
